FAERS Safety Report 12913836 (Version 2)
Quarter: 2016Q4

REPORT INFORMATION
  Report Type: Spontaneous
  Country: IE (occurrence: IE)
  Receive Date: 20161105
  Receipt Date: 20161124
  Transmission Date: 20170207
  Serious: Yes (Other)
  Sender: FDA-Public Use
  Company Number: IE-SUN PHARMACEUTICAL INDUSTRIES LTD-2016R1-127259

PATIENT
  Age: 72 Year
  Sex: Male

DRUGS (3)
  1. BECALUTAMIDE [Concomitant]
     Indication: PROSTATE CANCER
     Route: 065
  2. LEUPRORELIN [Concomitant]
     Active Substance: LEUPROLIDE ACETATE
     Indication: PROSTATE CANCER
     Route: 065
  3. ACETYLSALICYLIC ACID [Suspect]
     Active Substance: ASPIRIN
     Indication: PRODUCT USED FOR UNKNOWN INDICATION
     Dosage: UNK
     Route: 065

REACTIONS (3)
  - Haematoma [Recovering/Resolving]
  - Increased tendency to bruise [Recovering/Resolving]
  - Unmasking of previously unidentified disease [Recovering/Resolving]
